FAERS Safety Report 9257894 (Version 1)
Quarter: 2013Q2

REPORT INFORMATION
  Report Type: Spontaneous
  Country: US (occurrence: US)
  Receive Date: 20130426
  Receipt Date: 20130426
  Transmission Date: 20140414
  Serious: No
  Sender: FDA-Public Use
  Company Number: US-GLAXOSMITHKLINE-A0992592A

PATIENT
  Age: 85 Year
  Sex: Male

DRUGS (11)
  1. ZOFRAN [Suspect]
     Indication: PROPHYLAXIS OF NAUSEA AND VOMITING
     Route: 048
  2. THEOPHYLLINE [Concomitant]
  3. ALBUTEROL NEBULIZER [Concomitant]
  4. IPRATROPIUM BROMIDE [Concomitant]
  5. PREDNISONE [Concomitant]
  6. PROZAC [Concomitant]
  7. LASIX [Concomitant]
  8. POTASSIUM [Concomitant]
  9. TUMS [Concomitant]
  10. LORTAB [Concomitant]
  11. PERCOCET [Concomitant]

REACTIONS (1)
  - Drug ineffective [Unknown]
